FAERS Safety Report 8830329 (Version 1)
Quarter: 2012Q4

REPORT INFORMATION
  Report Type: 
  Country: US (occurrence: US)
  Receive Date: 20121009
  Receipt Date: 20121009
  Transmission Date: 20130627
  Serious: Yes (Death)
  Sender: FDA-Public Use
  Company Number: US-PFIZER INC-2012248929

PATIENT

DRUGS (2)
  1. NITROSTAT [Suspect]
     Dosage: 0.4 mg, UNK
  2. ALDACTONE [Suspect]
     Dosage: 25 mg, UNK

REACTIONS (1)
  - Death [Fatal]
